FAERS Safety Report 7435738-5 (Version None)
Quarter: 2011Q2

REPORT INFORMATION
  Report Type: 
  Country: None (occurrence: None)
  Receive Date: 20110425
  Receipt Date: 20110413
  Transmission Date: 20111010
  Serious: Yes (Other)
  Sender: FDA-Public Use
  Company Number: US-ELI_LILLY_AND_COMPANY-US201005004918

PATIENT
  Sex: Female
  Weight: 60.771 kg

DRUGS (2)
  1. FORTEO [Suspect]
  2. FORTEO [Suspect]
     Indication: OSTEOPOROSIS
     Dosage: 20 UG, DAILY (1/D)
     Route: 058
     Dates: start: 20100427

REACTIONS (5)
  - BRONCHITIS [None]
  - MUSCLE SPASMS [None]
  - INJECTION SITE ERYTHEMA [None]
  - BREAST CANCER [None]
  - ARTHRALGIA [None]
